FAERS Safety Report 6190712-4 (Version None)
Quarter: 2009Q2

REPORT INFORMATION
  Report Type: 
  Country: None (occurrence: None)
  Receive Date: 20090514
  Receipt Date: 20090505
  Transmission Date: 20091009
  Serious: Yes (Other)
  Sender: FDA-Public Use
  Company Number: CA-JNJCH-2009012799

PATIENT
  Sex: Male
  Weight: 18.6 kg

DRUGS (1)
  1. BENADRYL [Suspect]
     Indication: URTICARIA
     Dosage: TEXT:5 ML ONCE
     Route: 048
     Dates: start: 20090504, end: 20090504

REACTIONS (4)
  - FLUSHING [None]
  - HEAD INJURY [None]
  - PYREXIA [None]
  - SOMNOLENCE [None]
